FAERS Safety Report 12453100 (Version 1)
Quarter: 2016Q2

REPORT INFORMATION
  Report Type: Spontaneous
  Country: US (occurrence: US)
  Receive Date: 20160609
  Receipt Date: 20160609
  Transmission Date: 20160815
  Serious: Yes (Life-Threatening, Other)
  Sender: FDA-Public Use
  Company Number: US-BIOGEN-2016BI00246681

PATIENT
  Sex: Female

DRUGS (1)
  1. AVONEX [Suspect]
     Active Substance: INTERFERON BETA-1A
     Indication: MULTIPLE SCLEROSIS
     Route: 065
     Dates: start: 19971101, end: 20160331

REACTIONS (4)
  - Thyroid disorder [Unknown]
  - Ill-defined disorder [Unknown]
  - Hip arthroplasty [Unknown]
  - Diabetes mellitus [Unknown]
